FAERS Safety Report 13385594 (Version 4)
Quarter: 2017Q2

REPORT INFORMATION
  Report Type: Spontaneous
  Country: IT (occurrence: IT)
  Receive Date: 20170330
  Receipt Date: 20170628
  Transmission Date: 20170830
  Serious: Yes (Hospitalization, Other)
  Sender: FDA-Public Use
  Company Number: IT-PFIZER INC-2017133819

PATIENT
  Age: 71 Year
  Sex: Female

DRUGS (7)
  1. URBASON /00049601/ [Suspect]
     Active Substance: METHYLPREDNISOLONE
     Indication: RHEUMATOID ARTHRITIS
     Dosage: 4 MG, DAILY
     Route: 048
     Dates: start: 20170127, end: 20170227
  2. BONVIVA [Concomitant]
     Active Substance: IBANDRONATE SODIUM
     Indication: OSTEOPENIA
     Dosage: UNK
     Dates: start: 2013
  3. LAROXYL [Suspect]
     Active Substance: AMITRIPTYLINE
     Dosage: 40 GTT DAILY (10 DROPS AT 8:00 AM, 10 DROPS AT 12:00 PM, AND 20 DROPS AT 10:00 PM)
     Route: 048
     Dates: start: 20170225, end: 20170227
  4. SALAZOPYRIN EN [Suspect]
     Active Substance: SULFASALAZINE
     Indication: CROHN^S DISEASE
     Dosage: 500 MG, 2 TABLETS 3X DAILY
     Route: 048
     Dates: start: 20170127, end: 20170227
  5. METHOTREXATE. [Concomitant]
     Active Substance: METHOTREXATE
     Indication: ARTHRITIS ENTEROPATHIC
     Dosage: 15 MG ONE VIAL/WEEK
     Dates: start: 201101
  6. HUMIRA [Concomitant]
     Active Substance: ADALIMUMAB
     Indication: ARTHRITIS ENTEROPATHIC
     Dosage: 40 MG ONCE EVERY 2 WEEKS
     Dates: start: 201311
  7. OMEPRAZOLE. [Concomitant]
     Active Substance: OMEPRAZOLE
     Dosage: 20 MG, UNK

REACTIONS (4)
  - Pyrexia [Recovering/Resolving]
  - Odynophagia [Recovering/Resolving]
  - Erythema [Recovering/Resolving]
  - Drug reaction with eosinophilia and systemic symptoms [Recovering/Resolving]

NARRATIVE: CASE EVENT DATE: 20170226
